FAERS Safety Report 12740248 (Version 1)
Quarter: 2016Q3

REPORT INFORMATION
  Report Type: Spontaneous
  Country: US (occurrence: US)
  Receive Date: 20160913
  Receipt Date: 20160913
  Transmission Date: 20161109
  Serious: Yes (Other)
  Sender: FDA-Public Use
  Company Number: US-GILEAD-2016-0228000

PATIENT
  Age: 58 Year
  Sex: Male
  Weight: 84.81 kg

DRUGS (3)
  1. LISINOPRIL. [Concomitant]
     Active Substance: LISINOPRIL
     Indication: HYPERTENSION
  2. MOTRIN [Concomitant]
     Active Substance: IBUPROFEN
     Indication: OSTEOARTHRITIS
  3. HARVONI [Suspect]
     Active Substance: LEDIPASVIR\SOFOSBUVIR
     Indication: HEPATITIS C
     Dosage: UNK
     Route: 065
     Dates: start: 201509

REACTIONS (3)
  - Treatment failure [Unknown]
  - Viral mutation identified [Unknown]
  - Drug interaction [Unknown]
